FAERS Safety Report 18061404 (Version 1)
Quarter: 2020Q3

REPORT INFORMATION
  Report Type: Spontaneous
  Country: US (occurrence: US)
  Receive Date: 20200723
  Receipt Date: 20200723
  Transmission Date: 20201103
  Serious: Yes (Other)
  Sender: FDA-Public Use
  Company Number: US-KASDIRECT-2020-US-013134

PATIENT
  Age: 6 Month
  Sex: Female
  Weight: 7.26 kg

DRUGS (2)
  1. BABYGANICS NATURAL INSECT REPELLENT, 6OZ (PUMP) [Suspect]
     Active Substance: HERBALS
     Dosage: APPLIED AS DIRECTED
     Route: 061
     Dates: start: 20200529, end: 20200627
  2. SPF 50 PLUS SUNSCREEN [Suspect]
     Active Substance: OCTISALATE\TITANIUM DIOXIDE\ZINC OXIDE
     Indication: THERAPEUTIC SKIN CARE TOPICAL
     Dosage: APPLIED AS DIRECTED
     Route: 061
     Dates: start: 20200529, end: 20200627

REACTIONS (4)
  - Posture abnormal [Unknown]
  - Eye movement disorder [Unknown]
  - Depressed level of consciousness [Unknown]
  - Seizure like phenomena [Unknown]

NARRATIVE: CASE EVENT DATE: 20200623
